FAERS Safety Report 8324655-4 (Version None)
Quarter: 2012Q1

REPORT INFORMATION
  Report Type: 
  Country: None (occurrence: None)
  Receive Date: 20120315
  Receipt Date: 20110601
  Transmission Date: 20120608
  Serious: No
  Sender: FDA-Public Use
  Company Number: PHHY2011US28947

PATIENT
  Age: 51 Year
  Sex: Male

DRUGS (4)
  1. GILENYA [Suspect]
     Indication: MULTIPLE SCLEROSIS
     Dosage: 0.5 MG, DAILY, ORAL
     Route: 048
     Dates: start: 20110316
  2. KAPEATITE [Concomitant]
  3. LEXAPRO [Concomitant]
  4. KLONOPIN [Concomitant]

REACTIONS (6)
  - BLOOD PRESSURE DECREASED [None]
  - FAECES DISCOLOURED [None]
  - ABDOMINAL PAIN [None]
  - FATIGUE [None]
  - DIARRHOEA [None]
  - HEART RATE DECREASED [None]
